FAERS Safety Report 5482560-5 (Version None)
Quarter: 2007Q4

REPORT INFORMATION
  Report Type: 
  Country: None (occurrence: None)
  Receive Date: 20071011
  Receipt Date: 20070713
  Transmission Date: 20080405
  Serious: No
  Sender: FDA-Public Use
  Company Number: A0662488A

PATIENT
  Age: 49 Year
  Sex: Male

DRUGS (7)
  1. TYKERB [Suspect]
     Indication: SARCOMA
     Dosage: 1250MG PER DAY
     Route: 048
     Dates: start: 20070706
  2. NEURONTIN [Concomitant]
  3. LISINOPRIL [Concomitant]
  4. CISPLATIN [Concomitant]
  5. OMEPRAZOLE [Concomitant]
  6. TAXOTERE [Concomitant]
  7. HERCEPTIN [Concomitant]

REACTIONS (7)
  - ABDOMINAL DISCOMFORT [None]
  - ABDOMINAL DISTENSION [None]
  - CANDIDIASIS [None]
  - DIARRHOEA [None]
  - NAUSEA [None]
  - RASH [None]
  - VOMITING [None]
